FAERS Safety Report 10243045 (Version 1)
Quarter: 2014Q2

REPORT INFORMATION
  Report Type: Spontaneous
  Country: US (occurrence: None)
  Receive Date: 20140613
  Receipt Date: 20140613
  Transmission Date: 20141212
  Serious: Yes (Hospitalization, Other)
  Sender: FDA-Public Use
  Company Number: AUR-APL-2014-06313

PATIENT
  Age: 60 Year
  Sex: Female

DRUGS (9)
  1. CLARITHROMYCIN [Suspect]
     Indication: BALAMUTHIA INFECTION
  2. FLUCONAZOLE [Suspect]
     Indication: BALAMUTHIA INFECTION
  3. AZITHROMYCIN (AZITHROMYCIN) [Suspect]
     Indication: BALAMUTHIA INFECTION
  4. TACROLIMUS (TACROLIMUS) [Suspect]
     Indication: IMMUNOSUPPRESSION
  5. MILTEFOSINE [Suspect]
     Indication: BALAMUTHIA INFECTION
  6. ALBENDAZOLE [Suspect]
     Indication: BALAMUTHIA INFECTION
  7. ALEMTUZUMAB (ALEMTUZUMAB) [Concomitant]
  8. METHYLPREDNISOLONE (METHYLPREDNISOLONE) [Concomitant]
  9. MYCOPHENOLATE MOFETL (MYCOPHENOLATE MOFETIL) [Concomitant]

REACTIONS (8)
  - Renal failure acute [None]
  - Toxicity to various agents [None]
  - Abasia [None]
  - Hallucination [None]
  - Dehydration [None]
  - Balance disorder [None]
  - Vomiting [None]
  - Nausea [None]
